FAERS Safety Report 9287101 (Version 1)
Quarter: 2013Q2

REPORT INFORMATION
  Report Type: Spontaneous
  Country: US (occurrence: None)
  Receive Date: 20130508
  Receipt Date: 20130508
  Transmission Date: 20140414
  Serious: Yes (Other)
  Sender: FDA-Public Use
  Company Number: A1021412A

PATIENT
  Age: 14 Year
  Sex: Male

DRUGS (1)
  1. SODIUM FLUORIDE + POTASSIUM NITRATE [Suspect]
     Indication: SENSITIVITY OF TEETH
     Route: 047

REACTIONS (5)
  - Chemical burns of eye [None]
  - Accidental exposure to product [None]
  - Eye burns [None]
  - Ulcerative keratitis [None]
  - Eye infection bacterial [None]
